FAERS Safety Report 9703623 (Version 1)
Quarter: 2013Q4

REPORT INFORMATION
  Report Type: Spontaneous
  Country: US (occurrence: US)
  Receive Date: 20131122
  Receipt Date: 20131122
  Transmission Date: 20140711
  Serious: Yes (Hospitalization, Other)
  Sender: FDA-Public Use
  Company Number: US-PFIZER INC-2013333187

PATIENT
  Age: 29 Year
  Sex: Male
  Weight: 117.91 kg

DRUGS (3)
  1. LYRICA [Suspect]
     Indication: HEADACHE
     Dosage: 75 MG, 2X/DAY
     Route: 048
     Dates: start: 20131018, end: 20131103
  2. LYRICA [Suspect]
     Indication: OCCIPITAL NEURALGIA
  3. SEROQUEL [Concomitant]
     Dosage: 20 MG, 1X/DAY

REACTIONS (2)
  - Off label use [Unknown]
  - Renal failure acute [Unknown]
